FAERS Safety Report 23574524 (Version 1)
Quarter: 2024Q1

REPORT INFORMATION
  Report Type: Spontaneous
  Country: KR (occurrence: KR)
  Receive Date: 20240228
  Receipt Date: 20240228
  Transmission Date: 20240410
  Serious: Yes (Hospitalization, Other)
  Sender: FDA-Public Use
  Company Number: KR-SA-SAC20240226001493

PATIENT
  Age: 60 Year
  Sex: Female
  Weight: 53 kg

DRUGS (20)
  1. ZALTRAP [Suspect]
     Active Substance: ZIV-AFLIBERCEPT
     Indication: Colorectal cancer
     Dosage: 4 MG/KG, QOW
     Route: 065
     Dates: start: 20210726
  2. IRINOTECAN HYDROCHLORIDE [Suspect]
     Active Substance: IRINOTECAN HYDROCHLORIDE
     Indication: Colon cancer
     Dosage: 150 MG/M2, QOW
     Route: 065
     Dates: start: 20210726
  3. LEUCOVORIN CALCIUM [Suspect]
     Active Substance: LEUCOVORIN CALCIUM
     Indication: Colon cancer
     Dosage: 400 MG/M2, QOW
     Route: 065
     Dates: start: 20210726
  4. FLUOROURACIL SODIUM [Suspect]
     Active Substance: FLUOROURACIL SODIUM
     Indication: Colon cancer
     Dosage: 400 MG/M2, QOW
     Route: 065
     Dates: start: 20210726
  5. FLUOROURACIL SODIUM [Suspect]
     Active Substance: FLUOROURACIL SODIUM
     Dosage: 2400 MG/M2, QOW
     Route: 065
     Dates: start: 20210726
  6. SODIUM BICARBONATE [Concomitant]
     Active Substance: SODIUM BICARBONATE
     Indication: Stomatitis
     Dosage: 1 G
     Route: 065
     Dates: start: 20211008
  7. BENZYDAMINE HYDROCHLORIDE [Concomitant]
     Active Substance: BENZYDAMINE HYDROCHLORIDE
     Indication: Stomatitis
     Dosage: 100 ML
     Route: 065
     Dates: start: 20210723
  8. OXYCODONE HYDROCHLORIDE [Concomitant]
     Active Substance: OXYCODONE HYDROCHLORIDE
     Indication: Tumour pain
     Dosage: 5 MG
     Route: 065
     Dates: start: 20201031
  9. LEVOTHYROXINE SODIUM [Concomitant]
     Active Substance: LEVOTHYROXINE SODIUM
     Indication: Hypothyroidism
     Dosage: 88 MG, QD
     Route: 065
     Dates: start: 20220516
  10. MAGNESIUM OXIDE [Concomitant]
     Active Substance: MAGNESIUM OXIDE
     Indication: Constipation
     Dosage: 250 MG
     Route: 065
     Dates: start: 20220516
  11. MEPERIDINE HYDROCHLORIDE [Concomitant]
     Active Substance: MEPERIDINE HYDROCHLORIDE
     Indication: Peritonitis
     Dosage: 25 MG
     Route: 065
     Dates: start: 20220704
  12. CALCIUM CHLORIDE [Concomitant]
     Active Substance: CALCIUM CHLORIDE
     Indication: Prophylaxis
     Dosage: 1200 MG
     Route: 065
     Dates: start: 20220704
  13. ACETYLCYSTEINE [Concomitant]
     Active Substance: ACETYLCYSTEINE
     Indication: Prophylaxis
     Dosage: 800 MG, Q6H
     Route: 065
     Dates: start: 20220704
  14. PROPOFOL [Concomitant]
     Active Substance: PROPOFOL
     Indication: Sedation
     Dosage: 1000 MG, QD
     Route: 065
     Dates: start: 20220704
  15. REMIFENTANIL HYDROCHLORIDE [Concomitant]
     Active Substance: REMIFENTANIL HYDROCHLORIDE
     Indication: Sedation
     Dosage: 1 MG, QD
     Route: 065
     Dates: start: 20220704
  16. PIPERACILLIN SODIUM\TAZOBACTAM SODIUM [Concomitant]
     Active Substance: PIPERACILLIN SODIUM\TAZOBACTAM SODIUM
     Indication: Peritonitis
     Dosage: 4.5 G
     Route: 065
     Dates: start: 20220703
  17. FAMOTIDINE [Concomitant]
     Active Substance: FAMOTIDINE
     Indication: Peritonitis
     Dosage: 20 MG, Q12H
     Route: 065
     Dates: start: 20220703
  18. TRAMADOL HYDROCHLORIDE [Concomitant]
     Active Substance: TRAMADOL HYDROCHLORIDE
     Indication: Peritonitis
     Dosage: 50 MG
     Route: 065
     Dates: start: 20220703
  19. URSODIOL [Concomitant]
     Active Substance: URSODIOL
     Indication: Aspartate aminotransferase increased
     Dosage: 100 MG
     Route: 065
     Dates: start: 20211022
  20. ACETAMINOPHEN\CODEINE\IBUPROFEN [Concomitant]
     Active Substance: ACETAMINOPHEN\CODEINE\IBUPROFEN
     Indication: Tumour pain
     Dosage: 1 DF
     Route: 065
     Dates: start: 20210906

REACTIONS (1)
  - Peritonitis [Recovering/Resolving]

NARRATIVE: CASE EVENT DATE: 20220703
